FAERS Safety Report 5081911-3 (Version None)
Quarter: 2006Q3

REPORT INFORMATION
  Report Type: 
  Country: None (occurrence: None)
  Receive Date: 20060816
  Receipt Date: 20060809
  Transmission Date: 20061208
  Serious: Yes (Other)
  Sender: FDA-Public Use
  Company Number: US-JNJFOC-20060802707

PATIENT
  Age: 2 Year
  Sex: Female

DRUGS (1)
  1. TOPAMAX [Suspect]
     Indication: ACCIDENTAL EXPOSURE
     Route: 048

REACTIONS (1)
  - ACCIDENTAL EXPOSURE [None]
